FAERS Safety Report 8832484 (Version 1)
Quarter: 2012Q4

REPORT INFORMATION
  Report Type: Spontaneous
  Country: US (occurrence: None)
  Receive Date: 20121009
  Receipt Date: 20121009
  Transmission Date: 20130627
  Serious: No
  Sender: FDA-Public Use
  Company Number: None

PATIENT
  Age: 11 Year
  Sex: Male

DRUGS (1)
  1. MONTELUKAST SODIUM [Suspect]
     Indication: SEASONAL ALLERGY
     Dosage: 1 tablet, daily, oral route
     Route: 048
     Dates: start: 201208, end: 201209

REACTIONS (2)
  - Drug ineffective [None]
  - No adverse event [None]
